FAERS Safety Report 4468961-2 (Version None)
Quarter: 2004Q4

REPORT INFORMATION
  Report Type: 
  Country: None (occurrence: None)
  Receive Date: 20041005
  Receipt Date: 20040927
  Transmission Date: 20050328
  Serious: Yes (Death)
  Sender: FDA-Public Use
  Company Number: GBWYE070128SEP04

PATIENT
  Age: 87 Year
  Sex: Female

DRUGS (2)
  1. ADVIL [Suspect]
     Indication: ARTHRALGIA
     Dosage: 400 MG 3X PER 1 DAY
     Route: 048
     Dates: start: 20040909, end: 20040914
  2. ASPIRIN [Concomitant]

REACTIONS (2)
  - DUODENAL ULCER PERFORATION [None]
  - RENAL FAILURE ACUTE [None]
